FAERS Safety Report 6370709-1 (Version None)
Quarter: 2009Q3

REPORT INFORMATION
  Report Type: 
  Country: None (occurrence: None)
  Receive Date: 20090921
  Receipt Date: 20090921
  Transmission Date: 20100115
  Serious: Yes (Other)
  Sender: FDA-Public Use
  Company Number: None

PATIENT
  Age: 39 Year
  Sex: Female
  Weight: 103.8737 kg

DRUGS (1)
  1. ALLI [Suspect]
     Indication: OVERWEIGHT
     Dosage: 1 TABLET 3XDAILY PO
     Route: 048
     Dates: start: 20080702, end: 20080710

REACTIONS (7)
  - DIARRHOEA [None]
  - EMOTIONAL DISTRESS [None]
  - FLATULENCE [None]
  - MUSCULAR WEAKNESS [None]
  - PRODUCT QUALITY ISSUE [None]
  - TREMOR [None]
  - VOMITING [None]
